FAERS Safety Report 8808008 (Version 6)
Quarter: 2013Q1

REPORT INFORMATION
  Report Type: Report from Study
  Country: US (occurrence: US)
  Receive Date: 20120925
  Receipt Date: 20130228
  Transmission Date: 20140127
  Serious: Yes (Hospitalization)
  Sender: FDA-Public Use
  Company Number: US-JNJFOC-20120908800

PATIENT
  Age: 13 Year
  Sex: Female
  Weight: 30.5 kg

DRUGS (2)
  1. INFLIXIMAB, RECOMBINANT [Suspect]
     Indication: CROHN^S DISEASE
     Route: 042
  2. HUMIRA [Concomitant]
     Dates: start: 20110425

REACTIONS (1)
  - Crohn^s disease [Recovered/Resolved]
